FAERS Safety Report 22197492 (Version 1)
Quarter: 2023Q2

REPORT INFORMATION
  Report Type: Spontaneous
  Country: US (occurrence: None)
  Receive Date: 20230411
  Receipt Date: 20230411
  Transmission Date: 20230722
  Serious: Yes (Other)
  Sender: FDA-Public Use
  Company Number: None

PATIENT
  Age: 32 Year
  Sex: Female
  Weight: 56.25 kg

DRUGS (2)
  1. CIPROFLOXACIN [Suspect]
     Active Substance: CIPROFLOXACIN
     Indication: Urinary tract infection
     Dates: start: 20210110, end: 20210116
  2. DOXYCYCLINE [Suspect]
     Active Substance: DOXYCYCLINE

REACTIONS (2)
  - Rash vesicular [None]
  - Anaphylactic reaction [None]

NARRATIVE: CASE EVENT DATE: 20210111
